FAERS Safety Report 8334164-4 (Version None)
Quarter: 2012Q2

REPORT INFORMATION
  Report Type: 
  Country: None (occurrence: None)
  Receive Date: 20120503
  Receipt Date: 20120501
  Transmission Date: 20120825
  Serious: No
  Sender: FDA-Public Use
  Company Number: PHFR2012GB001249

PATIENT
  Sex: Female

DRUGS (9)
  1. ASPIRIN [Concomitant]
     Dosage: 75 MG, QD
  2. ISOSORBIDE MONONITRATE [Concomitant]
     Dosage: 60 MG, QD
  3. RAMIPRIL [Concomitant]
     Dosage: 5 MG, QD
  4. ATENOLOL [Concomitant]
     Dosage: 50 MG, QD
  5. SOLIFENACIN SUCCINATE [Concomitant]
     Dosage: 4 MG, UNK
  6. EZETIMIBE [Concomitant]
     Dosage: 10 MG, QD
  7. EXELON [Suspect]
     Indication: DEMENTIA
     Dosage: 9.5 MG, UNK
     Route: 062
     Dates: start: 20110201, end: 20111101
  8. LEVOTHYROXINE SODIUM [Concomitant]
     Dosage: 75 MG, QD
  9. SIMVASTATIN [Concomitant]
     Dosage: 40 MG, QD

REACTIONS (2)
  - SKIN REACTION [None]
  - RASH PRURITIC [None]
